FAERS Safety Report 21624833 (Version 1)
Quarter: 2022Q4

REPORT INFORMATION
  Report Type: Report from Study
  Country: US (occurrence: US)
  Receive Date: 20221122
  Receipt Date: 20221122
  Transmission Date: 20230112
  Serious: Yes (Other)
  Sender: FDA-Public Use
  Company Number: US-ABBVIE-4207843

PATIENT
  Sex: Male

DRUGS (1)
  1. VENCLEXTA [Suspect]
     Active Substance: VENETOCLAX
     Indication: Chronic lymphocytic leukaemia recurrent
     Dosage: FORM STRENGTH: 100 MILLIGRAM?4 TABLETS BY MOUTH ONCE DAILY WITH FOOD AND A FULL GLASS OF WATER AT...
     Route: 048

REACTIONS (2)
  - Basal cell carcinoma [Not Recovered/Not Resolved]
  - Rash pruritic [Not Recovered/Not Resolved]
